FAERS Safety Report 8520905-X (Version None)
Quarter: 2012Q3

REPORT INFORMATION
  Report Type: 
  Country: None (occurrence: None)
  Receive Date: 20120706
  Receipt Date: 20120622
  Transmission Date: 20120928
  Serious: Yes (Death, Other)
  Sender: FDA-Public Use
  Company Number: JP-2012-15477

PATIENT
  Age: 83 Year
  Sex: Female
  Weight: 40 kg

DRUGS (8)
  1. CARVEDILOL [Concomitant]
  2. KAMACHOL (TRAPIDIL) [Concomitant]
  3. SPIRONOLACTONE [Concomitant]
  4. SAMSCA [Suspect]
     Indication: CARDIAC FAILURE
     Dosage: 15 MG MILLIGRAM(S), QD, ORAL
     Route: 048
     Dates: start: 20120508, end: 20120516
  5. DIGOXIN [Concomitant]
  6. FUROSEMIDE [Concomitant]
  7. NITRODERM [Concomitant]
  8. FAMOTIDINE [Concomitant]

REACTIONS (6)
  - PLEURAL EFFUSION [None]
  - PLATELET COUNT DECREASED [None]
  - RENAL IMPAIRMENT [None]
  - PALPITATIONS [None]
  - CARDIAC FAILURE [None]
  - CONDITION AGGRAVATED [None]
